FAERS Safety Report 5113060-X (Version None)
Quarter: 2006Q3

REPORT INFORMATION
  Report Type: 
  Country: None (occurrence: None)
  Receive Date: 20060731
  Receipt Date: 20060612
  Transmission Date: 20061208
  Serious: No
  Sender: FDA-Public Use
  Company Number: 2006PV015429

PATIENT
  Age: 67 Year
  Sex: Female
  Weight: 136.0791 kg

DRUGS (12)
  1. BYETTA [Suspect]
     Indication: DIABETES MELLITUS NON-INSULIN-DEPENDENT
     Dosage: 5 MCG;BID;SC
     Route: 058
     Dates: start: 20060520
  2. GLIPIZIDE [Concomitant]
  3. AVANDIA [Concomitant]
  4. TRAMADOL HCL [Concomitant]
  5. COZAAR [Concomitant]
  6. TOPROL-XL [Concomitant]
  7. PROTONIX [Concomitant]
  8. ZOCOR [Concomitant]
  9. CELEBREX [Concomitant]
  10. DETROL [Concomitant]
  11. VITAMIN B-12 [Concomitant]
  12. ASPIRIN [Concomitant]

REACTIONS (1)
  - PAIN IN EXTREMITY [None]
